FAERS Safety Report 21867944 (Version 1)
Quarter: 2023Q1

REPORT INFORMATION
  Report Type: Spontaneous
  Country: BR (occurrence: BR)
  Receive Date: 20230116
  Receipt Date: 20230116
  Transmission Date: 20230417
  Serious: Yes (Hospitalization, Other)
  Sender: FDA-Public Use
  Company Number: BR-009507513-2301BRA004291

PATIENT
  Sex: Male
  Weight: 92 kg

DRUGS (3)
  1. KEYTRUDA [Suspect]
     Active Substance: PEMBROLIZUMAB
     Indication: Metastatic malignant melanoma
     Dosage: ONE DOSE
     Route: 042
     Dates: start: 20220930
  2. ATENOLOL [Concomitant]
     Active Substance: ATENOLOL
     Indication: Hypotension
     Dosage: 25 MILLIGRAM, BID
  3. PRASOL [Concomitant]
     Indication: Prophylaxis
     Dosage: 15 MILLIGRAM, QD

REACTIONS (9)
  - Device dislocation [Unknown]
  - Visual impairment [Unknown]
  - Malignant neoplasm progression [Unknown]
  - Myositis [Recovering/Resolving]
  - Eyelid pain [Unknown]
  - Aphonia [Unknown]
  - Dysphonia [Unknown]
  - Toxicity to various agents [Recovering/Resolving]
  - Pain in extremity [Unknown]

NARRATIVE: CASE EVENT DATE: 20220101
